FAERS Safety Report 7065682-7 (Version None)
Quarter: 2010Q4

REPORT INFORMATION
  Report Type: 
  Country: None (occurrence: None)
  Receive Date: 20101027
  Receipt Date: 20101013
  Transmission Date: 20110411
  Serious: Yes (Hospitalization, Other)
  Sender: FDA-Public Use
  Company Number: US-PURDUE-USA-2010-0046498

PATIENT
  Sex: Female
  Weight: 45.351 kg

DRUGS (1)
  1. OXYCONTIN [Suspect]
     Indication: PAIN
     Dosage: 40 MG, QID
     Route: 048
     Dates: start: 20100831, end: 20100905

REACTIONS (6)
  - CONSTIPATION [None]
  - DRUG DEPENDENCE [None]
  - DRUG EFFECT DELAYED [None]
  - FEELING ABNORMAL [None]
  - HYPOAESTHESIA [None]
  - RECTAL HAEMORRHAGE [None]
